FAERS Safety Report 16616120 (Version 1)
Quarter: 2019Q3

REPORT INFORMATION
  Report Type: Spontaneous
  Country: US (occurrence: US)
  Receive Date: 20190723
  Receipt Date: 20190723
  Transmission Date: 20191004
  Serious: Yes (Other)
  Sender: FDA-Public Use
  Company Number: None

PATIENT
  Age: 2 Year
  Sex: Female
  Weight: 12.15 kg

DRUGS (6)
  1. MIRALAX [Suspect]
     Active Substance: POLYETHYLENE GLYCOL 3350
     Indication: CONSTIPATION
     Route: 048
     Dates: start: 20190501, end: 20190607
  2. SENNA [Concomitant]
     Active Substance: SENNA LEAF\SENNOSIDES\SENNOSIDES A AND B
  3. LIL CRITTERS GUMMY VITAMINS [Concomitant]
  4. LACTULOSE. [Concomitant]
     Active Substance: LACTULOSE
  5. LIL CRITTERS GUMMY OMEGA 3 [Concomitant]
  6. PREBIOTIC/PROBIOTIC GUMMIES [Concomitant]

REACTIONS (4)
  - Anger [None]
  - Screaming [None]
  - Aggression [None]
  - Food refusal [None]

NARRATIVE: CASE EVENT DATE: 20190501
